FAERS Safety Report 25052735 (Version 1)
Quarter: 2025Q1

REPORT INFORMATION
  Report Type: Spontaneous
  Country: CA (occurrence: CA)
  Receive Date: 20250307
  Receipt Date: 20250307
  Transmission Date: 20250408
  Serious: Yes (Other)
  Sender: ROCHE
  Company Number: CA-002147023-NVSC2025CA036793

PATIENT
  Age: 40 Year
  Sex: Male

DRUGS (2)
  1. OMALIZUMAB [Suspect]
     Active Substance: OMALIZUMAB
     Indication: Chronic spontaneous urticaria
     Dosage: 300 MG, Q4W
     Route: 058
  2. BILASTINE [Concomitant]
     Active Substance: BILASTINE
     Indication: Product used for unknown indication
     Dosage: 2 DOSAGE FORM (1 EVERY 0.5 DAYS)
     Route: 048

REACTIONS (4)
  - Rebound effect [Unknown]
  - Urticaria [Unknown]
  - Rash [Unknown]
  - Product dose omission issue [Unknown]
